FAERS Safety Report 7273249-0 (Version None)
Quarter: 2011Q1

REPORT INFORMATION
  Report Type: 
  Country: None (occurrence: None)
  Receive Date: 20110203
  Receipt Date: 20110124
  Transmission Date: 20110831
  Serious: Yes (Other)
  Sender: FDA-Public Use
  Company Number: IE-ELI_LILLY_AND_COMPANY-IE201101005905

PATIENT
  Sex: Male

DRUGS (2)
  1. MIRTAZAPINE [Concomitant]
  2. PROZAC [Suspect]
     Indication: DEPRESSION
     Dosage: 40 MG, EACH MORNING

REACTIONS (1)
  - B-CELL LYMPHOMA [None]
